FAERS Safety Report 7385167-8 (Version None)
Quarter: 2011Q1

REPORT INFORMATION
  Report Type: 
  Country: None (occurrence: None)
  Receive Date: 20110330
  Receipt Date: 20110328
  Transmission Date: 20110831
  Serious: Yes (Other)
  Sender: FDA-Public Use
  Company Number: US-ABBOTT-11P-163-0714670-00

PATIENT
  Sex: Male

DRUGS (11)
  1. SIMCOR [Suspect]
     Indication: PRODUCT USED FOR UNKNOWN INDICATION
  2. SAXAGLIPTIN [Suspect]
     Indication: PRODUCT USED FOR UNKNOWN INDICATION
  3. LANTUS [Suspect]
     Indication: TYPE 2 DIABETES MELLITUS
  4. CRESTOR [Suspect]
     Indication: PRODUCT USED FOR UNKNOWN INDICATION
  5. NIACIN [Concomitant]
     Indication: PRODUCT USED FOR UNKNOWN INDICATION
  6. GLYBURIDE [Suspect]
     Indication: TYPE 2 DIABETES MELLITUS
  7. REGULAR INSULIN [Suspect]
     Indication: TYPE 2 DIABETES MELLITUS
  8. METFORMIN HCL [Suspect]
     Indication: TYPE 2 DIABETES MELLITUS
  9. ASPIRIN [Concomitant]
     Indication: PRODUCT USED FOR UNKNOWN INDICATION
  10. PLACEBO [Suspect]
     Indication: TYPE 2 DIABETES MELLITUS
  11. GLYBURIDE [Suspect]

REACTIONS (2)
  - MUSCULAR WEAKNESS [None]
  - MYALGIA [None]
